FAERS Safety Report 11100050 (Version 1)
Quarter: 2015Q2

REPORT INFORMATION
  Report Type: Spontaneous
  Country: AU (occurrence: AU)
  Receive Date: 20150508
  Receipt Date: 20150508
  Transmission Date: 20150821
  Serious: Yes (Other)
  Sender: FDA-Public Use
  Company Number: AU-GLAXOSMITHKLINE-AU2015GSK057807

PATIENT
  Sex: Female

DRUGS (1)
  1. NICABATE CQ [Suspect]
     Active Substance: NICOTINE
     Indication: EX-TOBACCO USER
     Dosage: UNK
     Route: 062

REACTIONS (3)
  - Hyperadrenalism [Unknown]
  - Contusion [Unknown]
  - Urticaria [Unknown]
